FAERS Safety Report 23822882 (Version 1)
Quarter: 2024Q2

REPORT INFORMATION
  Report Type: Spontaneous
  Country: FR (occurrence: FR)
  Receive Date: 20240506
  Receipt Date: 20240506
  Transmission Date: 20240716
  Serious: Yes (Other)
  Sender: FDA-Public Use
  Company Number: None

PATIENT
  Age: 30 Year
  Sex: Male
  Weight: 95 kg

DRUGS (5)
  1. MESALAMINE [Suspect]
     Active Substance: MESALAMINE
     Indication: Colitis ulcerative
     Dosage: 1 DOSAGE FORM, QD
     Route: 054
     Dates: start: 20231010
  2. MESALAMINE [Suspect]
     Active Substance: MESALAMINE
     Dosage: 1 DOSAGE FORM, QD
     Route: 054
     Dates: start: 20231031
  3. MESALAMINE [Suspect]
     Active Substance: MESALAMINE
     Dosage: 2 GRAM, Q12H
     Route: 048
     Dates: start: 20220708
  4. MESALAMINE [Suspect]
     Active Substance: MESALAMINE
     Dosage: 1.6 GRAM, Q8HR
     Route: 048
     Dates: start: 20230221
  5. INFLIXIMAB [Suspect]
     Active Substance: INFLIXIMAB
     Indication: Colitis ulcerative
     Dosage: 240 MILLIGRAM, Q2WEEKS
     Route: 058
     Dates: start: 20220706

REACTIONS (1)
  - Diabetes insipidus [Recovering/Resolving]

NARRATIVE: CASE EVENT DATE: 20230701
